FAERS Safety Report 18731342 (Version 1)
Quarter: 2021Q1

REPORT INFORMATION
  Report Type: Spontaneous
  Country: AU (occurrence: AU)
  Receive Date: 20210112
  Receipt Date: 20210112
  Transmission Date: 20210419
  Serious: Yes (Other)
  Sender: FDA-Public Use
  Company Number: AU-TAKEDA-2020TUS059489

PATIENT
  Age: 8 Week
  Sex: Female

DRUGS (1)
  1. RESOTRANS [Suspect]
     Active Substance: PRUCALOPRIDE SUCCINATE
     Indication: PRODUCT USED FOR UNKNOWN INDICATION
     Dosage: UNK
     Route: 065

REACTIONS (5)
  - Exposure during pregnancy [Unknown]
  - Product use issue [Unknown]
  - Hyperemesis gravidarum [Unknown]
  - Impaired gastric emptying [Unknown]
  - Off label use [Unknown]
